FAERS Safety Report 7074472-0 (Version None)
Quarter: 2010Q4

REPORT INFORMATION
  Report Type: 
  Country: None (occurrence: None)
  Receive Date: 20101029
  Receipt Date: 20101021
  Transmission Date: 20110411
  Serious: Yes (Death)
  Sender: FDA-Public Use
  Company Number: US-US-EMD SERONO, INC.-7023370

PATIENT
  Sex: Female
  Weight: 39 kg

DRUGS (8)
  1. REBIF [Suspect]
     Indication: MULTIPLE SCLEROSIS
     Dates: start: 20030401, end: 20071223
  2. UNSPECIFIED MEDICATIONS [Concomitant]
     Dates: end: 20071223
  3. PAXIL [Concomitant]
     Indication: DEPRESSION
     Dates: end: 20071223
  4. NITROFURANTOIN [Concomitant]
     Indication: PROPHYLAXIS URINARY TRACT INFECTION
     Dates: end: 20071223
  5. TRILEPTAL [Concomitant]
     Indication: PAIN
     Dates: end: 20071223
  6. EVISTA [Concomitant]
     Indication: BONE DENSITY ABNORMAL
     Dates: end: 20071223
  7. BACLOFEN [Concomitant]
     Indication: MUSCLE SPASTICITY
     Dates: end: 20071223
  8. RELAFEN [Concomitant]
     Indication: ARTHRALGIA
     Dates: end: 20071223

REACTIONS (4)
  - CONDITION AGGRAVATED [None]
  - DECUBITUS ULCER [None]
  - DIET REFUSAL [None]
  - MULTIPLE SCLEROSIS [None]
